FAERS Safety Report 6980763-1 (Version None)
Quarter: 2010Q3

REPORT INFORMATION
  Report Type: 
  Country: None (occurrence: None)
  Receive Date: 20100910
  Receipt Date: 20100910
  Transmission Date: 20110219
  Serious: Yes (Other)
  Sender: FDA-Public Use
  Company Number: None

PATIENT
  Sex: Female
  Weight: 102.0593 kg

DRUGS (1)
  1. MULTAQ [Suspect]
     Indication: ATRIAL FIBRILLATION
     Dosage: MULTAQ 400 MG BID PO
     Route: 048
     Dates: start: 20100819, end: 20100830

REACTIONS (1)
  - CARDIAC FAILURE CONGESTIVE [None]
